FAERS Safety Report 6036123-3 (Version None)
Quarter: 2009Q1

REPORT INFORMATION
  Report Type: 
  Country: None (occurrence: None)
  Receive Date: 20090113
  Receipt Date: 20090109
  Transmission Date: 20090719
  Serious: Yes (Other)
  Sender: FDA-Public Use
  Company Number: GB-TEVA-183553ISR

PATIENT
  Age: 81 Year
  Sex: Female
  Weight: 50 kg

DRUGS (1)
  1. NIFEDIPINE [Suspect]
     Indication: RAYNAUD'S PHENOMENON
     Route: 048
     Dates: start: 20081216, end: 20081216

REACTIONS (1)
  - DEAFNESS [None]
